FAERS Safety Report 8481627 (Version 2)
Quarter: 2012Q4

REPORT INFORMATION
  Report Type: 
  Country: BR (occurrence: BR)
  Receive Date: 20120329
  Receipt Date: 20120920
  Transmission Date: 20130627
  Serious: No
  Sender: FDA-Public Use
  Company Number: BR-ELI_LILLY_AND_COMPANY-BR201112001604

PATIENT
  Sex: Female
  Weight: 38 kg

DRUGS (3)
  1. FORTEO [Suspect]
     Indication: OSTEOPOROSIS
     Dosage: UNK, unknown
     Route: 065
     Dates: start: 201106
  2. SERETIDE [Concomitant]
     Indication: ASTHMA
     Dosage: UNK, unknown
     Route: 065
  3. CLENIL [Concomitant]
     Indication: ASTHMATIC CRISIS
     Dosage: UNK, every 3 hrs
     Route: 065

REACTIONS (6)
  - Cough [Unknown]
  - Vomiting [Unknown]
  - Dyspnoea [Unknown]
  - Respiratory tract infection [Unknown]
  - Headache [Unknown]
  - Nausea [Unknown]
